FAERS Safety Report 5088766-1 (Version None)
Quarter: 2006Q3

REPORT INFORMATION
  Report Type: 
  Country: None (occurrence: None)
  Receive Date: 20060824
  Receipt Date: 20060824
  Transmission Date: 20061208
  Serious: Yes (Other)
  Sender: FDA-Public Use
  Company Number: None

PATIENT
  Sex: Male
  Weight: 13 kg

DRUGS (1)
  1. PHENERGAN HCL [Suspect]
     Indication: VIRAL INFECTION
     Dosage: 12.5 MG.  ONCE IV
     Route: 042
     Dates: start: 20050926, end: 20050926

REACTIONS (1)
  - NO ADVERSE EFFECT [None]
